FAERS Safety Report 22393376 (Version 2)
Quarter: 2023Q2

REPORT INFORMATION
  Report Type: Spontaneous
  Country: KR (occurrence: KR)
  Receive Date: 20230601
  Receipt Date: 20230605
  Transmission Date: 20230722
  Serious: Yes (Hospitalization, Other)
  Sender: FDA-Public Use
  Company Number: KR-AMGEN-KORSP2023089843

PATIENT
  Age: 70 Year
  Sex: Male

DRUGS (9)
  1. XGEVA [Suspect]
     Active Substance: DENOSUMAB
     Indication: Lung cancer metastatic
     Dosage: 120 MILLIGRAM, Q4WK
     Route: 065
  2. GEMCITABINE [Suspect]
     Active Substance: GEMCITABINE
     Indication: Lung cancer metastatic
     Dosage: UNK
     Route: 065
     Dates: start: 20200929, end: 20210322
  3. CARBOPLATIN [Suspect]
     Active Substance: CARBOPLATIN
     Indication: Lung cancer metastatic
     Dosage: UNK
     Route: 065
     Dates: start: 20200929, end: 20210322
  4. ATEZOLIZUMAB [Suspect]
     Active Substance: ATEZOLIZUMAB
     Indication: Lung cancer metastatic
     Dosage: UNK
     Route: 065
     Dates: start: 20210409, end: 20210810
  5. DOCETAXEL [Suspect]
     Active Substance: DOCETAXEL
     Indication: Lung cancer metastatic
     Dosage: UNK
     Route: 065
     Dates: start: 20210907, end: 20211228
  6. VINORELBINE [Suspect]
     Active Substance: VINORELBINE TARTRATE
     Indication: Lung cancer metastatic
     Dosage: UNK
     Route: 065
     Dates: start: 20220224, end: 20220412
  7. PACLITAXEL [Suspect]
     Active Substance: PACLITAXEL
     Indication: Lung cancer metastatic
     Dosage: UNK
     Route: 065
     Dates: start: 20220504, end: 20220601
  8. CISPLATIN [Suspect]
     Active Substance: CISPLATIN
     Indication: Lung cancer metastatic
     Dosage: UNK
     Route: 065
     Dates: start: 20220224, end: 20220412
  9. CALCIUM\VITAMIN D [Concomitant]
     Active Substance: CALCIUM\VITAMIN D

REACTIONS (2)
  - Paraplegia [Unknown]
  - Lung disorder [Not Recovered/Not Resolved]
